FAERS Safety Report 7918137-9 (Version None)
Quarter: 2011Q4

REPORT INFORMATION
  Report Type: 
  Country: None (occurrence: None)
  Receive Date: 20111116
  Receipt Date: 20111109
  Transmission Date: 20120403
  Serious: Yes (Hospitalization, Other)
  Sender: FDA-Public Use
  Company Number: US-UCBSA-043662

PATIENT
  Age: 56 Year
  Sex: Female
  Weight: 90 kg

DRUGS (2)
  1. CIMZIA [Suspect]
     Indication: RHEUMATOID ARTHRITIS
     Dosage: DOSE: 1 SHOT
     Route: 058
     Dates: start: 20110501, end: 20111012
  2. METHOTREXATE [Concomitant]
     Indication: RHEUMATOID ARTHRITIS
     Dosage: 2.5X8 TABS Q SATURDAYS
     Route: 048
     Dates: start: 20110101

REACTIONS (4)
  - PYREXIA [None]
  - NAUSEA [None]
  - GENERALISED OEDEMA [None]
  - DIARRHOEA [None]
